FAERS Safety Report 9163982 (Version 2)
Quarter: 2013Q2

REPORT INFORMATION
  Report Type: Spontaneous
  Country: US (occurrence: US)
  Receive Date: 20130314
  Receipt Date: 20130405
  Transmission Date: 20140414
  Serious: Yes (Death)
  Sender: FDA-Public Use
  Company Number: US-PFIZER INC-2013083103

PATIENT
  Sex: 0

DRUGS (2)
  1. GLUCOTROL XL [Suspect]
     Dosage: UNK
     Dates: end: 20130219
  2. PROCARDIA XL [Suspect]
     Dosage: UNK
     Dates: end: 20130219

REACTIONS (1)
  - Death [Fatal]
